FAERS Safety Report 9819873 (Version 1)
Quarter: 2013Q4

REPORT INFORMATION
  Report Type: Spontaneous
  Country: US (occurrence: None)
  Receive Date: 20131223
  Receipt Date: 20131223
  Transmission Date: 20140711
  Serious: No
  Sender: FDA-Public Use
  Company Number: 220927

PATIENT
  Age: 56 Year
  Sex: Female

DRUGS (2)
  1. PICATO (0.015 %, GEL) [Suspect]
     Indication: ACTINIC KERATOSIS
     Dosage: (1 IN 1 D), TOPICAL
     Route: 061
     Dates: start: 20130310
  2. PICATO (0.015 %, GEL) [Suspect]
     Dosage: (1 IN 1 D), TOPICAL
     Route: 061
     Dates: start: 20130310

REACTIONS (2)
  - Application site erythema [None]
  - Application site swelling [None]
